FAERS Safety Report 8355578 (Version 9)
Quarter: 2012Q4

REPORT INFORMATION
  Report Type: Report from Study
  Country: BE (occurrence: BE)
  Receive Date: 20120126
  Receipt Date: 20121214
  Transmission Date: 20130627
  Serious: Yes (Hospitalization)
  Sender: FDA-Public Use
  Company Number: BE-AMGEN-BELCT2012004976

PATIENT
  Age: 39 Year
  Sex: Female
  Weight: 75 kg

DRUGS (21)
  1. DENOSUMAB [Suspect]
     Indication: BREAST CANCER
     Dosage: UNK, q3wk
     Route: 058
     Dates: start: 20111207
  2. NEULASTA [Concomitant]
     Dosage: 6 mg, q3wk
     Route: 058
     Dates: start: 20111228, end: 20120208
  3. FLUOROURACIL [Concomitant]
     Indication: BREAST CANCER
     Dosage: 600 mg/m2, q3wk
     Route: 042
     Dates: start: 20111207
  4. EPIRUBICIN [Concomitant]
     Indication: BREAST CANCER
     Dosage: 100 mg/m2, q3wk
     Route: 042
     Dates: start: 20111207
  5. CYCLOPHOSPHAMIDE [Concomitant]
     Indication: BREAST CANCER
     Dosage: 600 mg/m2, q3wk
     Route: 042
     Dates: start: 20111207
  6. PANTOMED [Concomitant]
     Dosage: 40 mg, UNK
     Route: 048
     Dates: start: 20111209, end: 20120331
  7. NOVABAN [Concomitant]
     Dosage: 5 mg, UNK
     Route: 042
     Dates: start: 20111207, end: 20120208
  8. LITICAN [Concomitant]
     Dosage: UNK
     Dates: start: 20111207, end: 20120213
  9. EMEND [Concomitant]
     Dosage: UNK
     Route: 048
     Dates: start: 20111207, end: 20120210
  10. DEXAMETHASONE [Concomitant]
     Dosage: 8 mg, UNK
     Route: 048
     Dates: start: 20111208, end: 20120503
  11. METHYLPREDNISOLONE [Concomitant]
     Dosage: 80 mg, UNK
     Dates: start: 20111207, end: 20120208
  12. AUGMENTIN [Concomitant]
     Dosage: 2 g, UNK
     Dates: start: 20111208, end: 20120205
  13. TAVANIC [Concomitant]
     Dosage: 500 mg, UNK
     Route: 048
     Dates: start: 20111209, end: 20111213
  14. CALCIUM CARBONATE [Concomitant]
     Dosage: 500 mg, UNK
     Route: 048
     Dates: start: 20111207
  15. VIT D3 [Concomitant]
     Dosage: 440 IU, UNK
     Route: 048
     Dates: start: 20111207
  16. ZALDIAR [Concomitant]
     Dosage: UNK
     Route: 048
     Dates: start: 20111125
  17. RIOPAN [Concomitant]
     Dosage: 800 mg, UNK
     Route: 048
     Dates: start: 20111209, end: 20111228
  18. BETAHISTINE [Concomitant]
     Dosage: 16 mg, UNK
     Route: 048
     Dates: start: 20030615
  19. STILNOCT [Concomitant]
     Dosage: 10 mg, UNK
     Route: 048
     Dates: start: 20111208
  20. DIFLUCAN [Concomitant]
     Dosage: 5 ml, UNK
     Route: 048
     Dates: start: 20111207, end: 20120521
  21. ZYRTEC [Concomitant]
     Dosage: 10 mg, UNK
     Route: 048
     Dates: start: 20111231, end: 20120401

REACTIONS (1)
  - Pain of skin [Recovered/Resolved]
